FAERS Safety Report 16842899 (Version 1)
Quarter: 2019Q3

REPORT INFORMATION
  Report Type: Spontaneous
  Country: DE (occurrence: DE)
  Receive Date: 20190924
  Receipt Date: 20190924
  Transmission Date: 20191005
  Serious: Yes (Congenital Anomaly, Other)
  Sender: FDA-Public Use
  Company Number: DE-HETERO-HET2019DE01285

PATIENT
  Sex: Female
  Weight: 2 kg

DRUGS (4)
  1. BELLA HEXAL [Concomitant]
     Active Substance: CYPROTERONE ACETATE\ETHINYL ESTRADIOL
     Indication: CONTRACEPTION
     Dosage: 2 MG, QD
     Route: 064
  2. OSPOLOT [Suspect]
     Active Substance: SULTHIAME
     Indication: EPILEPSY
     Dosage: 150 MG, BID(2X/DAY)
     Route: 064
  3. LEVETIRACETAM. [Suspect]
     Active Substance: LEVETIRACETAM
     Indication: EPILEPSY
     Dosage: 1000 MG, BID(2XDAY)
     Route: 064
  4. LEVETIRACETAM. [Suspect]
     Active Substance: LEVETIRACETAM
     Dosage: 2250 MG, QD
     Route: 064
     Dates: start: 20160211

REACTIONS (3)
  - Foetal exposure during pregnancy [Unknown]
  - Salivary gland mass [Unknown]
  - Small for dates baby [Unknown]

NARRATIVE: CASE EVENT DATE: 201601
